FAERS Safety Report 10789625 (Version 1)
Quarter: 2015Q1

REPORT INFORMATION
  Report Type: Not Available
  Country: ES (occurrence: ES)
  Receive Date: 20150212
  Receipt Date: 20150212
  Transmission Date: 20150721
  Serious: Yes (Other)
  Sender: FDA-Public Use
  Company Number: ES-CELGENE-144-21660-14020025

PATIENT

DRUGS (4)
  1. ABRAXANE [Suspect]
     Active Substance: PACLITAXEL
     Route: 041
  2. ABRAXANE [Suspect]
     Active Substance: PACLITAXEL
     Route: 041
  3. ABRAXANE [Suspect]
     Active Substance: PACLITAXEL
     Indication: BREAST CANCER METASTATIC
     Route: 041
  4. ABRAXANE [Suspect]
     Active Substance: PACLITAXEL
     Route: 041

REACTIONS (51)
  - Muscular weakness [Unknown]
  - Pyrexia [Unknown]
  - Aspartate aminotransferase increased [Unknown]
  - Myalgia [Unknown]
  - Blood alkaline phosphatase increased [Unknown]
  - Blood lactate dehydrogenase increased [Unknown]
  - Monocyte count increased [Unknown]
  - Neutropenia [Unknown]
  - Alopecia [Unknown]
  - Blood glucose decreased [Unknown]
  - Diarrhoea [Unknown]
  - Blood albumin decreased [Unknown]
  - Lymphocyte count increased [Unknown]
  - Onycholysis [Unknown]
  - Blood bilirubin increased [Unknown]
  - Herpes zoster [Unknown]
  - Blood urea decreased [Unknown]
  - Nail disorder [Unknown]
  - Alanine aminotransferase increased [Unknown]
  - Thrombocytopenia [Unknown]
  - Neurotoxicity [Unknown]
  - Abdominal pain upper [Unknown]
  - Bacteraemia [Unknown]
  - Neuropathy peripheral [Unknown]
  - Constipation [Unknown]
  - Asthenia [Unknown]
  - Lymphopenia [Unknown]
  - Lymphoedema [Unknown]
  - Hyperglycaemia [Unknown]
  - Mucosal inflammation [Unknown]
  - Oedema peripheral [Unknown]
  - Blood creatinine increased [Unknown]
  - Gamma-glutamyltransferase increased [Unknown]
  - Hyperproteinaemia [Unknown]
  - Oedema [Unknown]
  - Leukopenia [Unknown]
  - Dry skin [Unknown]
  - Hypernatraemia [Unknown]
  - Peripheral sensory neuropathy [Unknown]
  - Paraesthesia [Unknown]
  - Epistaxis [Unknown]
  - Hepatotoxicity [Unknown]
  - Anaemia [Unknown]
  - Monocytopenia [Unknown]
  - Breast cancer metastatic [Unknown]
  - Hypocalcaemia [Unknown]
  - Dysgeusia [Unknown]
  - Polyneuropathy [Unknown]
  - Nausea [Unknown]
  - Vomiting [Unknown]
  - Pain in extremity [Unknown]
